FAERS Safety Report 6919449-8 (Version None)
Quarter: 2010Q3

REPORT INFORMATION
  Report Type: 
  Country: None (occurrence: None)
  Receive Date: 20100811
  Receipt Date: 20100803
  Transmission Date: 20110219
  Serious: Yes (Hospitalization)
  Sender: FDA-Public Use
  Company Number: B0668265A

PATIENT
  Sex: Female

DRUGS (7)
  1. ALKERAN [Suspect]
     Indication: PRODUCT USED FOR UNKNOWN INDICATION
     Dosage: 8MG CYCLIC
     Route: 048
     Dates: start: 20100528, end: 20100618
  2. LEVOTHYROXINE SODIUM [Concomitant]
     Indication: HYPOTHYROIDISM
     Dosage: 100MCG PER DAY
     Route: 065
  3. CACIT VITAMINE D3 [Concomitant]
     Indication: PRODUCT USED FOR UNKNOWN INDICATION
     Route: 065
  4. ALDACTONE [Concomitant]
     Indication: PRODUCT USED FOR UNKNOWN INDICATION
     Dosage: 25MG PER DAY
     Route: 065
  5. FORTZAAR [Concomitant]
     Indication: PRODUCT USED FOR UNKNOWN INDICATION
     Route: 065
  6. OMEPRAZOLE [Concomitant]
     Indication: PRODUCT USED FOR UNKNOWN INDICATION
     Dosage: 20MG PER DAY
     Route: 065
  7. BI-PROFENID [Concomitant]
     Indication: OSTEOARTHRITIS
     Route: 065

REACTIONS (4)
  - BONE MARROW FAILURE [None]
  - LEUKOPENIA [None]
  - PETECHIAE [None]
  - THROMBOCYTOPENIC PURPURA [None]
